FAERS Safety Report 15867647 (Version 3)
Quarter: 2019Q1

REPORT INFORMATION
  Report Type: Spontaneous
  Country: RU (occurrence: RU)
  Receive Date: 20190125
  Receipt Date: 20190130
  Transmission Date: 20190417
  Serious: Yes (Hospitalization, Other)
  Sender: FDA-Public Use
  Company Number: RU-TEVA-2019-RU-1002649

PATIENT
  Age: 82 Year
  Sex: Female

DRUGS (2)
  1. LISINOPRIL-TEVA [Suspect]
     Active Substance: LISINOPRIL
     Dosage: 20MG
     Route: 065
  2. BISOPROLOL-TEVA [Suspect]
     Active Substance: BISOPROLOL
     Dosage: 5MG
     Route: 065

REACTIONS (8)
  - Hypertensive crisis [Recovered/Resolved]
  - Angina pectoris [Unknown]
  - Heart rate increased [Recovered/Resolved]
  - Suspected product quality issue [Unknown]
  - Drug ineffective [Unknown]
  - Blood pressure increased [Recovered/Resolved]
  - Product substitution issue [Unknown]
  - Cerebrovascular accident [Unknown]
